FAERS Safety Report 7928542-2 (Version None)
Quarter: 2011Q4

REPORT INFORMATION
  Report Type: 
  Country: None (occurrence: None)
  Receive Date: 20111118
  Receipt Date: 20111107
  Transmission Date: 20120403
  Serious: Yes (Death, Hospitalization)
  Sender: FDA-Public Use
  Company Number: US-BRISTOL-MYERS SQUIBB COMPANY-16239048

PATIENT
  Age: 49 Year
  Sex: Male

DRUGS (7)
  1. DIPHENHYDRAMINE HCL [Suspect]
  2. LISINOPRIL [Suspect]
  3. QUETIAPINE [Suspect]
  4. INSULIN [Suspect]
  5. NOREPINEPHRINE BITARTRATE [Suspect]
  6. BUPROPION HCL [Suspect]
  7. METOPROLOL TARTRATE [Suspect]

REACTIONS (2)
  - CARDIOGENIC SHOCK [None]
  - CARDIAC ARREST [None]
